FAERS Safety Report 7308364-6 (Version None)
Quarter: 2011Q1

REPORT INFORMATION
  Report Type: 
  Country: None (occurrence: None)
  Receive Date: 20110223
  Receipt Date: 20110214
  Transmission Date: 20110831
  Serious: Yes (Death)
  Sender: FDA-Public Use
  Company Number: B0701409A

PATIENT
  Sex: Male

DRUGS (1)
  1. AVANDIA [Suspect]
     Route: 048
     Dates: start: 20010101, end: 20010101

REACTIONS (4)
  - CARDIAC DISORDER [None]
  - SEPSIS [None]
  - URINARY TRACT INFECTION [None]
  - CEREBROVASCULAR ACCIDENT [None]
